FAERS Safety Report 15634467 (Version 3)
Quarter: 2019Q3

REPORT INFORMATION
  Report Type: Spontaneous
  Country: JP (occurrence: JP)
  Receive Date: 20181119
  Receipt Date: 20190708
  Transmission Date: 20191004
  Serious: Yes (Other)
  Sender: FDA-Public Use
  Company Number: PHHY2018JP155154

PATIENT
  Sex: Male

DRUGS (2)
  1. RIVASTACH [Suspect]
     Active Substance: RIVASTIGMINE
     Indication: FRONTOTEMPORAL DEMENTIA
     Dosage: UNK
     Route: 062
  2. OLANZAPINE. [Suspect]
     Active Substance: OLANZAPINE
     Indication: IMPULSIVE BEHAVIOUR
     Dosage: 2.5 MG, UNK
     Route: 065

REACTIONS (4)
  - Product use in unapproved indication [Unknown]
  - Aspiration [Unknown]
  - Sedation complication [Unknown]
  - Respiratory disorder [Unknown]
